FAERS Safety Report 12835992 (Version 1)
Quarter: 2016Q4

REPORT INFORMATION
  Report Type: Spontaneous
  Country: US (occurrence: US)
  Receive Date: 20161011
  Receipt Date: 20161011
  Transmission Date: 20170207
  Serious: Yes (Other)
  Sender: FDA-Public Use
  Company Number: US-HORIZON-ACT-0233-2016

PATIENT
  Age: 31 Year
  Sex: Female

DRUGS (1)
  1. ACTIMMUNE [Suspect]
     Active Substance: INTERFERON GAMMA-1B
     Indication: IMMUNE SYSTEM DISORDER
     Dosage: 74 MCG TIW
     Dates: start: 20121016, end: 20160914

REACTIONS (2)
  - Off label use [Unknown]
  - Surgery [Unknown]

NARRATIVE: CASE EVENT DATE: 20121016
